FAERS Safety Report 22270012 (Version 1)
Quarter: 2023Q2

REPORT INFORMATION
  Report Type: Spontaneous
  Country: FR (occurrence: FR)
  Receive Date: 20230501
  Receipt Date: 20230501
  Transmission Date: 20230722
  Serious: Yes (Hospitalization)
  Sender: FDA-Public Use
  Company Number: FR-ANIPHARMA-2023-FR-000084

PATIENT
  Age: 74 Year
  Sex: Female

DRUGS (13)
  1. CANDESARTAN CILEXETIL [Suspect]
     Active Substance: CANDESARTAN CILEXETIL
     Indication: Hypertension
     Dosage: 8 MG DAILY
     Route: 048
     Dates: end: 20230328
  2. PANTOPRAZOLE [Concomitant]
     Active Substance: PANTOPRAZOLE
     Dosage: DOSE TEXT: 2.5MG/J, AU LONG COURS
     Route: 065
  3. POLYETHYLENE GLYCOLS [Concomitant]
     Active Substance: POLYETHYLENE GLYCOLS
     Dosage: DOSE TEXT: 2.5MG/J, AU LONG COURS
     Route: 065
  4. VENLAFAXINE [Concomitant]
     Active Substance: VENLAFAXINE HYDROCHLORIDE
     Dosage: DOSE TEXT: 2.5MG/J, AU LONG COURS
     Route: 065
  5. DEPAKOTE [Concomitant]
     Active Substance: DIVALPROEX SODIUM
     Dosage: DOSE TEXT: 2.5MG/J, AU LONG COURS
     Route: 065
  6. FUROSEMIDE [Suspect]
     Active Substance: FUROSEMIDE
     Dosage: 20 MG DAILY
     Route: 048
  7. KARDEGIC [Concomitant]
     Active Substance: ASPIRIN DL-LYSINE
     Dosage: DOSE TEXT: 2.5MG/J, AU LONG COURS
     Route: 065
  8. LEVOTHYROXINE SODIUM [Concomitant]
     Active Substance: LEVOTHYROXINE SODIUM
     Dosage: DOSE TEXT: 2.5MG/J, AU LONG COURS
     Route: 065
  9. BISOPROLOL FUMARATE [Suspect]
     Active Substance: BISOPROLOL FUMARATE
     Dosage: DOSE TEXT: 2.5MG/J, AU LONG COURS
     Route: 048
  10. LORMETAZEPAM [Concomitant]
     Active Substance: LORMETAZEPAM
     Dosage: DOSE TEXT: 2.5MG/J, AU LONG COURS
     Route: 065
  11. XANAX [Concomitant]
     Active Substance: ALPRAZOLAM
     Dosage: DOSE TEXT: 2.5MG/J, AU LONG COURS
     Route: 065
  12. OLANZAPINE [Concomitant]
     Active Substance: OLANZAPINE
     Dosage: DOSE TEXT: 2.5MG/J, AU LONG COURS
     Route: 065
  13. TAHOR [Concomitant]
     Active Substance: ATORVASTATIN CALCIUM
     Dosage: DOSE TEXT: 2.5MG/J, AU LONG
     Route: 065

REACTIONS (3)
  - Hypoglycaemia [Unknown]
  - Hypotension [Unknown]
  - Acute kidney injury [Unknown]

NARRATIVE: CASE EVENT DATE: 20230328
